FAERS Safety Report 6633918-X (Version None)
Quarter: 2010Q1

REPORT INFORMATION
  Report Type: 
  Country: None (occurrence: None)
  Receive Date: 20100315
  Receipt Date: 20100305
  Transmission Date: 20100710
  Serious: Yes (Other)
  Sender: FDA-Public Use
  Company Number: ES-ASTRAZENECA-2010SE10022

PATIENT
  Age: 67 Year
  Sex: Female

DRUGS (11)
  1. SEROQUEL [Suspect]
     Indication: DEPRESSION
     Route: 048
     Dates: start: 20081202, end: 20091110
  2. ALEANDRONIC ACID [Concomitant]
     Route: 048
     Dates: start: 20080520
  3. ROPINIROLE HYDROCHLORIDE [Concomitant]
     Route: 048
     Dates: start: 20080121
  4. BONESIL D FLAS [Concomitant]
     Dosage: 1500 MG/400 IU 1 DF DAILY
     Route: 048
     Dates: start: 20080604
  5. CIPRALEX [Concomitant]
     Route: 048
     Dates: start: 20080227
  6. COAPROVEL [Concomitant]
     Dosage: 150/12.5 MG 1 DF DAILY
     Route: 048
     Dates: start: 20070418
  7. PANTOPRAZOLE ALTER [Concomitant]
     Route: 048
     Dates: start: 20080402
  8. SIMVASTATINE ASOL [Concomitant]
     Route: 048
     Dates: start: 20080911
  9. TORASEMIDA STADA [Concomitant]
     Route: 048
     Dates: start: 20080402
  10. TRIALMIN [Concomitant]
     Route: 048
     Dates: start: 20090622
  11. ZOLPIDEM ACOSL [Concomitant]
     Route: 048
     Dates: start: 20081226

REACTIONS (2)
  - BLINDNESS [None]
  - GLAUCOMA [None]
